FAERS Safety Report 5177082-5 (Version None)
Quarter: 2006Q4

REPORT INFORMATION
  Report Type: 
  Country: None (occurrence: None)
  Receive Date: 20061207
  Receipt Date: 20061127
  Transmission Date: 20070319
  Serious: Yes (Hospitalization)
  Sender: FDA-Public Use
  Company Number: 1-14422911

PATIENT
  Age: 76 Year
  Sex: Male

DRUGS (4)
  1. ALLOPURINOL [Suspect]
     Indication: GOUT
     Dosage: 300 MG DAILY ORAL
     Route: 048
     Dates: start: 20041101
  2. SLO NITRATE [Concomitant]
  3. ISOSORBIDE [Concomitant]
  4. PAIN PILLS [Concomitant]

REACTIONS (1)
  - COELIAC DISEASE [None]
